FAERS Safety Report 9114625 (Version 1)
Quarter: 2013Q1

REPORT INFORMATION
  Report Type: Spontaneous
  Country: US (occurrence: None)
  Receive Date: 20130220
  Receipt Date: 20130220
  Transmission Date: 20140127
  Serious: Yes (Hospitalization)
  Sender: FDA-Public Use
  Company Number: None

PATIENT
  Age: 78 Year
  Sex: Female
  Weight: 99.79 kg

DRUGS (8)
  1. ACTEMRA [Suspect]
     Dosage: EVERY 4 WEEKS
     Route: 042
     Dates: start: 20120718
  2. METHOTREXATE [Concomitant]
  3. CEPHALEXIN [Concomitant]
  4. PANTOPRAZOLE [Concomitant]
  5. AMLODIPINE [Concomitant]
  6. AUGMENTIN [Concomitant]
  7. INDAPAMLDE [Concomitant]
  8. PREDNISONE [Concomitant]

REACTIONS (3)
  - Platelet count increased [None]
  - Renal failure [None]
  - Dehydration [None]
